FAERS Safety Report 12561089 (Version 2)
Quarter: 2016Q3

REPORT INFORMATION
  Report Type: Spontaneous
  Country: US (occurrence: US)
  Receive Date: 20160715
  Receipt Date: 20160726
  Transmission Date: 20161109
  Serious: No
  Sender: FDA-Public Use
  Company Number: US-BAYER-2016-138085

PATIENT
  Age: 73 Year
  Sex: Female
  Weight: 67.12 kg

DRUGS (3)
  1. BENADRYL CHILDRENS ALLERGY/COLD [Concomitant]
     Dosage: UNK
  2. CLARITIN [Suspect]
     Active Substance: LORATADINE
     Indication: URTICARIA
     Dosage: 1 DF, PRN
     Route: 048
     Dates: end: 201607
  3. CLARITIN [Suspect]
     Active Substance: LORATADINE
     Indication: ALLERGY PROPHYLAXIS

REACTIONS (2)
  - Product use issue [None]
  - Diarrhoea [None]
